FAERS Safety Report 11225178 (Version 1)
Quarter: 2015Q2

REPORT INFORMATION
  Report Type: Spontaneous
  Country: DE (occurrence: DE)
  Receive Date: 20150629
  Receipt Date: 20150629
  Transmission Date: 20150821
  Serious: Yes (Other)
  Sender: FDA-Public Use
  Company Number: DE-TEVA-573452GER

PATIENT
  Age: 65 Year
  Sex: Female

DRUGS (2)
  1. TRAMADOL TROPFEN [Suspect]
     Active Substance: TRAMADOL
  2. TRAMADOL TABLETTEN [Suspect]
     Active Substance: TRAMADOL

REACTIONS (1)
  - Haemorrhage [Unknown]
